FAERS Safety Report 16838093 (Version 1)
Quarter: 2019Q3

REPORT INFORMATION
  Report Type: Spontaneous
  Country: ES (occurrence: ES)
  Receive Date: 20190923
  Receipt Date: 20190923
  Transmission Date: 20191005
  Serious: Yes (Hospitalization)
  Sender: FDA-Public Use
  Company Number: ES-BAXTER-2019BAX018400

PATIENT
  Age: 3 Day
  Sex: Female

DRUGS (1)
  1. VIAFLEX CLORURO SODICO 0,9% CON ADAPTADOR DE VIAL [Suspect]
     Active Substance: SODIUM CHLORIDE
     Indication: PRODUCT USED FOR UNKNOWN INDICATION
     Dosage: (125CL)
     Route: 065
     Dates: start: 20190829

REACTIONS (2)
  - Dose calculation error [Recovered/Resolved]
  - Hypernatraemia [Recovered/Resolved]

NARRATIVE: CASE EVENT DATE: 201908
